FAERS Safety Report 17027818 (Version 3)
Quarter: 2020Q1

REPORT INFORMATION
  Report Type: Report from Study
  Country: None (occurrence: DE)
  Receive Date: 20191113
  Receipt Date: 20200303
  Transmission Date: 20200409
  Serious: Yes (Hospitalization)
  Sender: FDA-Public Use
  Company Number: DE-ABBVIE-19P-062-2991609-00

PATIENT
  Age: 79 Year
  Sex: Male
  Weight: 65 kg

DRUGS (23)
  1. ZOFRAN [Concomitant]
     Active Substance: ONDANSETRON HYDROCHLORIDE
     Indication: PROPHYLAXIS OF NAUSEA AND VOMITING
     Route: 042
     Dates: start: 20170606
  2. VIVIDRIN AKUT [Concomitant]
     Indication: SEASONAL ALLERGY
     Route: 045
     Dates: start: 1987
  3. ACICLOVIR [Concomitant]
     Active Substance: ACYCLOVIR
     Indication: ANTIVIRAL PROPHYLAXIS
     Route: 048
     Dates: start: 20170605
  4. LEVODOPA/BENSERAZID [Concomitant]
     Active Substance: BENSERAZIDE\LEVODOPA
     Indication: PARKINSON^S DISEASE
     Route: 048
     Dates: start: 201802
  5. LEVOFLOXACIN. [Concomitant]
     Active Substance: LEVOFLOXACIN
     Indication: ANTIBIOTIC PROPHYLAXIS
     Route: 048
     Dates: start: 20190308
  6. BORTEZOMIB. [Suspect]
     Active Substance: BORTEZOMIB
     Indication: PLASMA CELL MYELOMA
     Dosage: CYCLE 1-8: ON DAYS 1, 4, 8 AND 11 OF 21 DAY CYCLE
     Route: 058
     Dates: start: 20170606, end: 20171106
  7. URIVESC [Concomitant]
     Active Substance: TROSPIUM CHLORIDE
     Indication: BENIGN PROSTATIC HYPERPLASIA
     Route: 048
     Dates: start: 20180317
  8. BORTEZOMIB. [Suspect]
     Active Substance: BORTEZOMIB
     Dosage: CYCLE 9 AND BEYOND: ON DAYS 1, 8, 15 AND 22 OF 35 DAY CYCLE
     Route: 058
     Dates: start: 20171120
  9. MOVICOL [Concomitant]
     Active Substance: POLYETHYLENE GLYCOL 3350\POTASSIUM CHLORIDE\SODIUM BICARBONATE\SODIUM CHLORIDE
     Route: 048
     Dates: start: 20170701, end: 20170702
  10. NATRIUMCHLORID ISOTONISCH [Concomitant]
     Indication: PROPHYLAXIS
  11. XARELTO [Concomitant]
     Active Substance: RIVAROXABAN
     Indication: THROMBOSIS PROPHYLAXIS
     Route: 048
     Dates: start: 20170913, end: 20171108
  12. XARELTO [Concomitant]
     Active Substance: RIVAROXABAN
     Route: 048
     Dates: start: 20171114, end: 20180204
  13. FRESUBIN [Concomitant]
     Active Substance: AMINO ACIDS\DEXTROSE\ELECTROLYTES NOS\SOYBEAN OIL\VITAMINS
     Indication: WEIGHT DECREASED
     Route: 048
     Dates: start: 20170918
  14. VENETOCLAX. [Suspect]
     Active Substance: VENETOCLAX
     Indication: PLASMA CELL MYELOMA
     Dosage: CYCLE 1-8: 21 DAYS; CYCLE 9 AND BEYOND: 35 DAYS
     Route: 048
     Dates: start: 20170606
  15. DEXAMETHASONE. [Suspect]
     Active Substance: DEXAMETHASONE
     Indication: PLASMA CELL MYELOMA
     Dosage: CYCLE 1- 8: ON DAYS 1, 2, 4, 5, 8, 9, 11 AND 12 OF  EACH 21 DAY CYCLE
     Route: 048
     Dates: start: 20170607, end: 20171107
  16. MOVICOL [Concomitant]
     Active Substance: POLYETHYLENE GLYCOL 3350\POTASSIUM CHLORIDE\SODIUM BICARBONATE\SODIUM CHLORIDE
     Indication: CONSTIPATION
     Route: 048
     Dates: start: 20170608, end: 20170615
  17. MOVICOL [Concomitant]
     Active Substance: POLYETHYLENE GLYCOL 3350\POTASSIUM CHLORIDE\SODIUM BICARBONATE\SODIUM CHLORIDE
     Indication: CONSTIPATION PROPHYLAXIS
     Route: 048
     Dates: start: 20170626, end: 20170630
  18. MOVICOL [Concomitant]
     Active Substance: POLYETHYLENE GLYCOL 3350\POTASSIUM CHLORIDE\SODIUM BICARBONATE\SODIUM CHLORIDE
     Route: 048
     Dates: start: 20180920
  19. COTRIMOXAZOL [Concomitant]
     Active Substance: SULFAMETHOXAZOLE\TRIMETHOPRIM
     Indication: ANTIBIOTIC PROPHYLAXIS
     Route: 048
     Dates: start: 20190308
  20. DEXAMETHASONE. [Suspect]
     Active Substance: DEXAMETHASONE
     Dosage: CYCLE 9 AND BEYOND: ON DAYS 1, 2, 8, 9, 15, 16, 22 AND 23 OF EACH CYCLE
     Route: 048
     Dates: start: 20171120
  21. NATRIUMCHLORID ISOTONISCH [Concomitant]
     Indication: CHEMOTHERAPY
     Route: 042
     Dates: start: 20170606
  22. XARELTO [Concomitant]
     Active Substance: RIVAROXABAN
     Route: 048
     Dates: start: 20180221
  23. FINASTERID [Concomitant]
     Active Substance: FINASTERIDE
     Indication: BENIGN PROSTATIC HYPERPLASIA
     Route: 048
     Dates: start: 20170920

REACTIONS (1)
  - Pneumonia [Recovered/Resolved]

NARRATIVE: CASE EVENT DATE: 20191031
